FAERS Safety Report 23443837 (Version 1)
Quarter: 2024Q1

REPORT INFORMATION
  Report Type: Spontaneous
  Country: FR (occurrence: FR)
  Receive Date: 20240125
  Receipt Date: 20240125
  Transmission Date: 20240410
  Serious: Yes (Other)
  Sender: FDA-Public Use
  Company Number: FR-AMGEN-FRASP2024013027

PATIENT
  Sex: Male

DRUGS (2)
  1. ADALIMUMAB [Suspect]
     Active Substance: ADALIMUMAB\ISOPROPYL ALCOHOL
     Indication: Acne fulminans
     Dosage: 40 MILLIGRAM, Q2WK
     Route: 065
  2. ISOTRETINOIN [Concomitant]
     Active Substance: ISOTRETINOIN
     Route: 065

REACTIONS (5)
  - Acne fulminans [Unknown]
  - Drug effective for unapproved indication [Unknown]
  - Hidradenitis [Unknown]
  - Axial spondyloarthritis [Unknown]
  - Off label use [Unknown]
